FAERS Safety Report 23297056 (Version 1)
Quarter: 2023Q4

REPORT INFORMATION
  Report Type: Spontaneous
  Country: IN (occurrence: IN)
  Receive Date: 20231214
  Receipt Date: 20231214
  Transmission Date: 20240110
  Serious: Yes (Other)
  Sender: FDA-Public Use
  Company Number: IN-PFIZER INC-PV202300200580

PATIENT
  Age: 89 Year
  Sex: Male

DRUGS (9)
  1. ATIVAN [Suspect]
     Active Substance: LORAZEPAM
     Dosage: UNK
     Route: 048
  2. LORAZEPAM [Concomitant]
     Active Substance: LORAZEPAM
  3. LOSARTAN [Concomitant]
     Active Substance: LOSARTAN
  4. LEVETIRACETAM [Concomitant]
     Active Substance: LEVETIRACETAM
  5. ASPIRIN [Concomitant]
     Active Substance: ASPIRIN
  6. GLICLAZIDE/METFORMIN [Concomitant]
  7. BETAMETHASONE/SALICYLIC ACID [Concomitant]
  8. DOLOGEL CT [Concomitant]
  9. DIGENE [ALUMINIUM HYDROXIDE;CARMELLOSE SODIUM;DIMETICONE;MAGNESIUM HYD [Concomitant]

REACTIONS (1)
  - Cerebral haemorrhage [Unknown]
